FAERS Safety Report 8905150 (Version 1)
Quarter: 2012Q4

REPORT INFORMATION
  Report Type: 
  Country: US (occurrence: US)
  Receive Date: 20121113
  Receipt Date: 20121113
  Transmission Date: 20130627
  Serious: No
  Sender: FDA-Public Use
  Company Number: US-B.I. PHARMACEUTICALS,INC./RIDGEFIELD-2012-BP-27536BP

PATIENT
  Age: 49 Year
  Sex: Female
  Weight: 64 kg

DRUGS (2)
  1. ZANTAC 150 (RANITIDINE HYDROCHLORIDE) [Suspect]
     Indication: DYSPEPSIA
     Route: 048
     Dates: start: 20121106, end: 20121109
  2. KLONOPIN [Concomitant]
     Indication: ANXIETY
     Dosage: 5 mg
     Route: 048
     Dates: start: 1995

REACTIONS (2)
  - Pruritus [Recovered/Resolved]
  - Rash macular [Not Recovered/Not Resolved]
